FAERS Safety Report 9265755 (Version 2)
Quarter: 2013Q3

REPORT INFORMATION
  Report Type: Report from Study
  Country: DE (occurrence: DE)
  Receive Date: 20130501
  Receipt Date: 20130809
  Transmission Date: 20140515
  Serious: Yes (Hospitalization)
  Sender: FDA-Public Use
  Company Number: DE-ABBOTT-13P-062-1082586-00

PATIENT
  Sex: Male

DRUGS (4)
  1. HUMIRA [Suspect]
     Indication: CROHN^S DISEASE
     Route: 058
     Dates: start: 20110119, end: 2013
  2. HUMIRA [Suspect]
     Route: 058
     Dates: start: 2013
  3. ANTIBIOTIC DRUG [Concomitant]
     Indication: PRODUCT USED FOR UNKNOWN INDICATION
  4. ENTOCORT [Concomitant]
     Indication: PRODUCT USED FOR UNKNOWN INDICATION

REACTIONS (3)
  - Intestinal fistula [Not Recovered/Not Resolved]
  - Purulence [Not Recovered/Not Resolved]
  - Inflammatory marker increased [Not Recovered/Not Resolved]
